FAERS Safety Report 6315880 (Version 4)
Quarter: 2017Q3

REPORT INFORMATION
  Report Type: Spontaneous
  Country: US (occurrence: US)
  Receive Date: 20061108
  Receipt Date: 20170928
  Transmission Date: 20171128
  Serious: Yes (Death, Hospitalization, Other)
  Sender: FDA-Public Use
  Company Number: US-PFIZER INC-2006133919

PATIENT
  Age: 77 Year
  Sex: Female
  Weight: 59 kg

DRUGS (4)
  1. CELEBREX [Suspect]
     Active Substance: CELECOXIB
     Indication: ARTHRITIS
     Dosage: UNK
     Route: 048
  2. BEXTRA [Suspect]
     Active Substance: VALDECOXIB
     Indication: ARTHRITIS
     Dosage: 10 MG, 1X/DAY
     Route: 048
     Dates: start: 20040201, end: 20040908
  3. VIOXX [Suspect]
     Active Substance: ROFECOXIB
     Indication: PAIN MANAGEMENT
     Dosage: UNK, 1X/DAY
     Route: 048
     Dates: start: 20001205, end: 20040701
  4. VIOXX [Suspect]
     Active Substance: ROFECOXIB
     Indication: RHEUMATOID ARTHRITIS

REACTIONS (2)
  - Ischaemic stroke [Unknown]
  - Dementia Alzheimer^s type [Fatal]

NARRATIVE: CASE EVENT DATE: 20040204
